FAERS Safety Report 20416938 (Version 1)
Quarter: 2022Q1

REPORT INFORMATION
  Report Type: Spontaneous
  Country: US (occurrence: None)
  Receive Date: 20220202
  Receipt Date: 20220202
  Transmission Date: 20220423
  Serious: No
  Sender: FDA-Public Use
  Company Number: None

PATIENT
  Age: 68 Year
  Sex: Female
  Weight: 88.65 kg

DRUGS (2)
  1. PAXLOVID [Suspect]
     Active Substance: NIRMATRELVIR\RITONAVIR
     Indication: COVID-19
     Dosage: FREQUENCY : EVERY 12 HOURS;?
     Route: 048
     Dates: start: 20220124, end: 20220128
  2. Duloxetine HCl delayed release (CYMBALTA) [Concomitant]

REACTIONS (4)
  - Dysgeusia [None]
  - Nasal congestion [None]
  - Headache [None]
  - Myalgia [None]

NARRATIVE: CASE EVENT DATE: 20220124
